FAERS Safety Report 9462023 (Version 1)
Quarter: 2013Q3

REPORT INFORMATION
  Report Type: Spontaneous
  Country: NG (occurrence: NG)
  Receive Date: 20130816
  Receipt Date: 20130816
  Transmission Date: 20140515
  Serious: Yes (Life-Threatening)
  Sender: FDA-Public Use
  Company Number: NG-ASTRAZENECA-2013SE62756

PATIENT
  Age: 36 Year
  Sex: Male

DRUGS (1)
  1. BUPIVACAINE [Suspect]
     Indication: EPIDURAL ANAESTHESIA
     Dosage: 8-10 ML
     Route: 008

REACTIONS (1)
  - Cardio-respiratory arrest [Recovering/Resolving]
